FAERS Safety Report 14641341 (Version 8)
Quarter: 2018Q4

REPORT INFORMATION
  Report Type: Report from Study
  Country: BR (occurrence: BR)
  Receive Date: 20180315
  Receipt Date: 20181010
  Transmission Date: 20190204
  Serious: Yes (Hospitalization, Disabling, Other)
  Sender: FDA-Public Use
  Company Number: BR-SA-2018SA062853

PATIENT
  Age: 48 Year
  Sex: Male
  Weight: 74 kg

DRUGS (5)
  1. ALEMTUZUMAB [Suspect]
     Active Substance: ALEMTUZUMAB
     Dosage: UNK UNK,UNK
     Route: 041
     Dates: start: 20180331, end: 20180331
  2. ALEMTUZUMAB [Suspect]
     Active Substance: ALEMTUZUMAB
     Dosage: UNK UNK,UNK
     Route: 041
     Dates: start: 20180330, end: 20180330
  3. ALEMTUZUMAB [Suspect]
     Active Substance: ALEMTUZUMAB
     Indication: MULTIPLE SCLEROSIS
     Dosage: DOSE: 5
     Route: 041
     Dates: start: 20180222, end: 20180222
  4. ALEMTUZUMAB [Suspect]
     Active Substance: ALEMTUZUMAB
     Dosage: DOSE: 3
     Route: 041
     Dates: start: 20180224, end: 20180224
  5. ALEMTUZUMAB [Suspect]
     Active Substance: ALEMTUZUMAB
     Dosage: DOSE: 3
     Route: 041
     Dates: start: 20180223, end: 20180223

REACTIONS (20)
  - Pyrexia [Recovered/Resolved]
  - Chills [Recovered/Resolved]
  - Immunodeficiency [Recovering/Resolving]
  - Tachycardia [Not Recovered/Not Resolved]
  - Unevaluable event [Not Recovered/Not Resolved]
  - Dermatitis atopic [Recovering/Resolving]
  - Condition aggravated [Not Recovered/Not Resolved]
  - Rash [Not Recovered/Not Resolved]
  - Erythema [Recovered/Resolved]
  - General physical health deterioration [Not Recovered/Not Resolved]
  - Vomiting [Recovered/Resolved]
  - Condition aggravated [Not Recovered/Not Resolved]
  - Nervous system disorder [Not Recovered/Not Resolved]
  - Pneumonia [Recovered/Resolved]
  - Hospitalisation [Recovered/Resolved]
  - Candida infection [Unknown]
  - Platelet count decreased [Unknown]
  - Ataxia [Not Recovered/Not Resolved]
  - C-reactive protein increased [Not Recovered/Not Resolved]
  - Walking disability [Not Recovered/Not Resolved]

NARRATIVE: CASE EVENT DATE: 2018
